FAERS Safety Report 22188783 (Version 1)
Quarter: 2023Q2

REPORT INFORMATION
  Report Type: Spontaneous
  Country: US (occurrence: US)
  Receive Date: 20230409
  Receipt Date: 20230409
  Transmission Date: 20230722
  Serious: No
  Sender: FDA-Public Use
  Company Number: US-INCYTE CORPORATION-2023IN002215

PATIENT

DRUGS (4)
  1. PEMAZYRE [Suspect]
     Active Substance: PEMIGATINIB
     Indication: Myeloid leukaemia
     Dosage: 13.5 MILLIGRAM, QD
     Route: 065
     Dates: start: 202209
  2. PEMAZYRE [Suspect]
     Active Substance: PEMIGATINIB
     Indication: Lymphocytic leukaemia
     Dosage: 9 MILLIGRAM, QD
     Route: 065
     Dates: start: 202210
  3. PEMAZYRE [Suspect]
     Active Substance: PEMIGATINIB
     Dosage: 9 MILLIGRAM, QD
     Route: 065
     Dates: start: 202211
  4. VITAMIN B6 [Concomitant]
     Active Substance: PYRIDOXINE HYDROCHLORIDE
     Indication: Product used for unknown indication
     Route: 065

REACTIONS (7)
  - Pain of skin [Unknown]
  - Skin burning sensation [Unknown]
  - Dysgraphia [Unknown]
  - Skin exfoliation [Unknown]
  - Nail toxicity [Unknown]
  - Onycholysis [Unknown]
  - Palmar-plantar erythrodysaesthesia syndrome [Unknown]
